FAERS Safety Report 10349289 (Version 1)
Quarter: 2014Q3

REPORT INFORMATION
  Report Type: Spontaneous
  Country: ES (occurrence: ES)
  Receive Date: 20140730
  Receipt Date: 20140730
  Transmission Date: 20150326
  Serious: Yes (Hospitalization)
  Sender: FDA-Public Use
  Company Number: ES-AMGEN INC.-ESPSP2014055977

PATIENT
  Age: 78 Year
  Sex: Female

DRUGS (11)
  1. ESCITALOPRAM NORMON [Concomitant]
     Dosage: 10 MG, UNK
     Dates: start: 20101216
  2. SINGULAIR [Concomitant]
     Active Substance: MONTELUKAST SODIUM
     Indication: BRONCHIAL DISORDER
     Dosage: 10 MG, UNK
     Dates: start: 20081211
  3. PRAVASTATINA [Concomitant]
     Indication: HYPERCHOLESTEROLAEMIA
     Dosage: 50 MG, UNK
  4. NATECAL D [Concomitant]
     Active Substance: CALCIUM CARBONATE\CHOLECALCIFEROL
     Dosage: UNK UNK, QD
     Dates: start: 20140308
  5. CALCIO CARBONATO [Concomitant]
  6. IXIA PLUS [Concomitant]
     Active Substance: HYDROCHLOROTHIAZIDE\OLMESARTAN MEDOXOMIL
     Indication: MITRAL VALVE INCOMPETENCE
     Dosage: 40/12.5 MG UNK, QD
  7. HIDROCLOROTIAZIDA [Concomitant]
     Active Substance: HYDROCHLOROTHIAZIDE
  8. PROLIA [Suspect]
     Active Substance: DENOSUMAB
     Indication: OSTEOPOROSIS
     Dosage: 1 JERINGA, CADA 180 DIAS
     Route: 065
     Dates: start: 20131218, end: 20140318
  9. PALEXIA [Concomitant]
     Active Substance: TAPENTADOL HYDROCHLORIDE
     Indication: PAIN
     Dosage: 50 MG, UNK
     Dates: start: 20131120
  10. COLECALCIFEROL [Concomitant]
     Active Substance: CHOLECALCIFEROL
  11. PREDNISONA CINFA [Concomitant]
     Dosage: 10 MG, UNK
     Dates: start: 20131120

REACTIONS (2)
  - Hyperparathyroidism secondary [Recovered/Resolved]
  - Hypocalcaemia [Recovered/Resolved]

NARRATIVE: CASE EVENT DATE: 20140312
